FAERS Safety Report 4695684-7 (Version None)
Quarter: 2005Q2

REPORT INFORMATION
  Report Type: 
  Country: None (occurrence: None)
  Receive Date: 20050616
  Receipt Date: 20050616
  Transmission Date: 20051028
  Serious: Yes (Life-Threatening)
  Sender: FDA-Public Use
  Company Number: None

PATIENT
  Age: 44 Year
  Sex: Female
  Weight: 84.369 kg

DRUGS (11)
  1. FENTANYL [Suspect]
     Indication: FIBROMYALGIA
     Dosage: 1 PATCH EVER 3 DAYS TRANSDERMA
     Route: 062
     Dates: start: 20050611, end: 20050614
  2. FENTANYL [Suspect]
     Indication: PAIN
     Dosage: 1 PATCH EVER 3 DAYS TRANSDERMA
     Route: 062
     Dates: start: 20050611, end: 20050614
  3. HYDROCODONE BITARTRATE [Concomitant]
  4. PHENERGAN [Concomitant]
  5. VALIUM [Concomitant]
  6. XANAX [Concomitant]
  7. DEMEROL [Concomitant]
  8. CYMBALTA [Concomitant]
  9. PREVISID [Concomitant]
  10. MAGNESSIUM [Concomitant]
  11. POTASSIUM CHLORIDE [Concomitant]

REACTIONS (8)
  - DIZZINESS [None]
  - FALL [None]
  - FEELING ABNORMAL [None]
  - FEELING HOT [None]
  - LOSS OF CONSCIOUSNESS [None]
  - PHARMACEUTICAL PRODUCT COMPLAINT [None]
  - SOMNOLENCE [None]
  - THERAPEUTIC RESPONSE UNEXPECTED WITH DRUG SUBSTITUTION [None]
